FAERS Safety Report 9593037 (Version 1)
Quarter: 2013Q4

REPORT INFORMATION
  Report Type: Spontaneous
  Country: US (occurrence: US)
  Receive Date: 20131004
  Receipt Date: 20131004
  Transmission Date: 20140711
  Serious: Yes (Hospitalization, Other)
  Sender: FDA-Public Use
  Company Number: US-VERTEX PHARMACEUTICALS INC-2013-010120

PATIENT
  Age: 56 Year
  Sex: Male

DRUGS (3)
  1. INCIVEK [Suspect]
     Indication: HEPATITIS C
  2. PEGYLATED INTERFERON [Suspect]
     Indication: HEPATITIS C
  3. RIBAVIRIN [Suspect]
     Indication: HEPATITIS C

REACTIONS (6)
  - Drug reaction with eosinophilia and systemic symptoms [Unknown]
  - Leukocytosis [Unknown]
  - Lymphadenopathy [Unknown]
  - Fatigue [Unknown]
  - Oedema peripheral [Unknown]
  - Blood creatinine increased [Unknown]
